FAERS Safety Report 6004349-0 (Version None)
Quarter: 2008Q4

REPORT INFORMATION
  Report Type: 
  Country: None (occurrence: None)
  Receive Date: 20081216
  Receipt Date: 20081210
  Transmission Date: 20090506
  Serious: Yes (Other)
  Sender: FDA-Public Use
  Company Number: US-ASTRAZENECA-2008UW27675

PATIENT
  Age: 66 Year
  Sex: Female
  Weight: 65.8 kg

DRUGS (6)
  1. CRESTOR [Suspect]
     Indication: BLOOD TRIGLYCERIDES INCREASED
     Dosage: 10 MG
     Route: 048
     Dates: start: 20081110
  2. LEVOXYL [Concomitant]
  3. PREMARIN [Concomitant]
  4. TENORMIN [Concomitant]
     Dosage: 25 MG
     Route: 048
  5. TENORMIN [Concomitant]
     Dosage: 100 MG
     Route: 048
  6. TENORMIN [Concomitant]
     Dosage: 50 MG
     Route: 048

REACTIONS (2)
  - BLINDNESS TRANSIENT [None]
  - HYPERTENSION [None]
